FAERS Safety Report 4965255-3 (Version None)
Quarter: 2006Q1

REPORT INFORMATION
  Report Type: 
  Country: None (occurrence: None)
  Receive Date: 20060201
  Receipt Date: 20051228
  Transmission Date: 20060701
  Serious: No
  Sender: FDA-Public Use
  Company Number: 2005PV006340

PATIENT
  Age: 57 Year
  Sex: Female
  Weight: 91.6266 kg

DRUGS (5)
  1. BYETTA [Suspect]
     Indication: DIABETES MELLITUS NON-INSULIN-DEPENDENT
     Dosage: 5 MCG;BID;SC
     Route: 058
     Dates: start: 20051101
  2. BYETTA [Suspect]
     Indication: WEIGHT CONTROL
     Dosage: 5 MCG;BID;SC
     Route: 058
     Dates: start: 20051101
  3. HUMALOG MIX 75/25 [Concomitant]
  4. INUSLIN HUMULIN 70/30 [Concomitant]
  5. FLOMAX [Concomitant]

REACTIONS (4)
  - ABDOMINAL DISCOMFORT [None]
  - CONSTIPATION [None]
  - ERUCTATION [None]
  - WEIGHT INCREASED [None]
